FAERS Safety Report 12194030 (Version 1)
Quarter: 2016Q1

REPORT INFORMATION
  Report Type: Spontaneous
  Country: DE (occurrence: DE)
  Receive Date: 20160321
  Receipt Date: 20160321
  Transmission Date: 20160526
  Serious: Yes (Other)
  Sender: FDA-Public Use
  Company Number: DE-ACCORD-038764

PATIENT
  Age: 60 Year
  Sex: Male

DRUGS (5)
  1. OXALIPLATIN. [Suspect]
     Active Substance: OXALIPLATIN
     Indication: INTESTINAL ADENOCARCINOMA
     Dosage: MODIFIED FOLFOX-6
  2. FOLINIC ACID [Concomitant]
     Active Substance: LEUCOVORIN
     Indication: INTESTINAL ADENOCARCINOMA
     Dosage: MODIFIED FOLFOX-6
  3. GEMCITABINE/GEMCITABINE HYDROCHLORIDE [Suspect]
     Active Substance: GEMCITABINE\GEMCITABINE HYDROCHLORIDE
     Indication: METASTASES TO LIVER
     Dosage: ON DAYS 1, 8, 15, 22, 29, 36, AND 43, 2ND CYCLE THAT STARTED ON DAY 50
  4. FLUOROURACIL. [Concomitant]
     Active Substance: FLUOROURACIL
     Indication: INTESTINAL ADENOCARCINOMA
     Dosage: MODIFIED FOLFOX-6, FOLLOWED BY CONTINUOUS INFUSION OVER 46 H AT A DOSE OF 2400 MG/M2, EVERY 2 WEEKS
     Route: 040
  5. PACLITAXEL/PACLITAXEL LIPOSOME [Suspect]
     Active Substance: PACLITAXEL
     Indication: METASTASES TO LIVER
     Dosage: NANOPARTICLE ALBUMIN-BOUND, ON DAYS 1, 8, 15, 22, 29, 36, AND 43, , 2ND CYCLE THAT STARTED ON DAY 50

REACTIONS (5)
  - Off label use [Unknown]
  - Fatigue [Unknown]
  - Polyneuropathy [Recovering/Resolving]
  - Thrombosis [Unknown]
  - Neutropenia [Unknown]
